FAERS Safety Report 4449041-9 (Version None)
Quarter: 2004Q3

REPORT INFORMATION
  Report Type: 
  Country: None (occurrence: None)
  Receive Date: 20040910
  Receipt Date: 20040901
  Transmission Date: 20050211
  Serious: Yes (Hospitalization)
  Sender: FDA-Public Use
  Company Number: 2004-09-0126

PATIENT
  Age: 73 Year
  Sex: Male

DRUGS (10)
  1. INTRON A [Suspect]
     Indication: METASTATIC RENAL CELL CARCINOMA
     Dosage: SEE IMAGE, SUBCUTANEOUS
     Route: 058
  2. INTRON A [Suspect]
     Indication: METASTATIC RENAL CELL CARCINOMA
     Dosage: SEE IMAGE, SUBCUTANEOUS
     Route: 058
  3. INTRON A [Suspect]
     Indication: METASTATIC RENAL CELL CARCINOMA
     Dosage: SEE IMAGE, SUBCUTANEOUS
     Route: 058
  4. INTRON A [Suspect]
     Indication: METASTATIC RENAL CELL CARCINOMA
     Dosage: SEE IMAGE, SUBCUTANEOUS
     Route: 058
  5. INTRON A [Suspect]
     Indication: METASTATIC RENAL CELL CARCINOMA
     Dosage: SEE IMAGE, SUBCUTANEOUS
     Route: 058
  6. PROLEUKIN [Suspect]
     Indication: METASTATIC RENAL CELL CARCINOMA
     Dosage: SEE IMAGE, SUBCUTANEOUS
     Route: 058
  7. PROLEUKIN [Suspect]
     Indication: METASTATIC RENAL CELL CARCINOMA
     Dosage: SEE IMAGE, SUBCUTANEOUS
     Route: 058
  8. PROLEUKIN [Suspect]
     Indication: METASTATIC RENAL CELL CARCINOMA
     Dosage: SEE IMAGE, SUBCUTANEOUS
     Route: 058
  9. PROLEUKIN [Suspect]
     Indication: METASTATIC RENAL CELL CARCINOMA
     Dosage: SEE IMAGE, SUBCUTANEOUS
     Route: 058
  10. FLUOROURACIL [Suspect]
     Indication: METASTATIC RENAL CELL CARCINOMA
     Dosage: 750MG/M2 QWK INTRAVENOUS
     Route: 042

REACTIONS (3)
  - BLOOD SODIUM DECREASED [None]
  - DIARRHOEA [None]
  - REFLUX GASTRITIS [None]
